FAERS Safety Report 24007352 (Version 2)
Quarter: 2024Q3

REPORT INFORMATION
  Report Type: Spontaneous
  Country: JP (occurrence: JP)
  Receive Date: 20240624
  Receipt Date: 20240709
  Transmission Date: 20241016
  Serious: Yes (Hospitalization, Other)
  Sender: DR REDDYS
  Company Number: JP-RDY-LIT/JPN/24/0009081

PATIENT
  Age: 79 Year
  Sex: Female

DRUGS (2)
  1. ACYCLOVIR [Suspect]
     Active Substance: ACYCLOVIR
     Indication: Nervous system disorder
     Route: 042
  2. FAMCICLOVIR [Concomitant]
     Active Substance: FAMCICLOVIR
     Indication: Ophthalmic herpes zoster
     Route: 048

REACTIONS (8)
  - Orbital apex syndrome [Unknown]
  - Ophthalmic herpes zoster [Unknown]
  - Ophthalmoplegia [Unknown]
  - Meningitis [Unknown]
  - Diplopia [Unknown]
  - Eye pain [Unknown]
  - Hyporeflexia [Unknown]
  - Cranial nerve disorder [Unknown]
